FAERS Safety Report 6488002-5 (Version None)
Quarter: 2009Q4

REPORT INFORMATION
  Report Type: 
  Country: None (occurrence: None)
  Receive Date: 20091210
  Receipt Date: 20091203
  Transmission Date: 20100525
  Serious: Yes (Hospitalization)
  Sender: FDA-Public Use
  Company Number: PHEH2009US17196

PATIENT
  Sex: Female

DRUGS (6)
  1. EXJADE [Suspect]
     Dosage: 250 MG, QD
     Route: 048
  2. LEVEMIR [Concomitant]
  3. ALBUTEROL [Concomitant]
  4. PROVENTIL [Concomitant]
  5. NOVOLOG [Concomitant]
  6. ADVAIR DISKUS 100/50 [Concomitant]

REACTIONS (1)
  - INFLUENZA [None]
